FAERS Safety Report 5967668-X (Version None)
Quarter: 2008Q4

REPORT INFORMATION
  Report Type: 
  Country: None (occurrence: None)
  Receive Date: 20081126
  Receipt Date: 20081119
  Transmission Date: 20090506
  Serious: Yes (Death, Other)
  Sender: FDA-Public Use
  Company Number: PHHY2008JP25960

PATIENT
  Age: 64 Year
  Sex: Male

DRUGS (11)
  1. NEORAL [Suspect]
     Indication: INTERSTITIAL LUNG DISEASE
     Dosage: 50 MG, BID
     Route: 048
     Dates: start: 20081007, end: 20081020
  2. ITRIZOLE [Interacting]
     Indication: ORAL CANDIDIASIS
     Route: 045
  3. RITUXAN [Concomitant]
     Indication: LYMPHOMA
  4. METHYLPREDNISOLONE 16MG TAB [Concomitant]
     Indication: LYMPHOMA
  5. PREDNISOLONE [Concomitant]
     Indication: INTERSTITIAL LUNG DISEASE
     Dosage: 50 MG/D
     Dates: start: 20080918
  6. CHOP [Concomitant]
  7. FAMOTIDINE [Concomitant]
     Dosage: 20 MG
     Dates: start: 20080918
  8. LASIX [Concomitant]
     Dosage: 20 MG
     Dates: start: 20080918
  9. AMOBAN [Concomitant]
     Dosage: 7.5 MG
     Dates: start: 20080918
  10. COTRIM [Concomitant]
     Dosage: UNK
     Dates: start: 20081007
  11. POVIDONE IODINE [Concomitant]
     Dosage: UNK
     Dates: start: 20081007

REACTIONS (4)
  - IMMUNOSUPPRESSANT DRUG LEVEL INCREASED [None]
  - INTERSTITIAL LUNG DISEASE [None]
  - ORAL CANDIDIASIS [None]
  - WHITE BLOOD CELL COUNT DECREASED [None]
